FAERS Safety Report 18461088 (Version 1)
Quarter: 2020Q4

REPORT INFORMATION
  Report Type: Spontaneous
  Country: US (occurrence: US)
  Receive Date: 20201104
  Receipt Date: 20201104
  Transmission Date: 20210114
  Serious: Yes (Other)
  Sender: FDA-Public Use
  Company Number: US-SA-2020SA307712

PATIENT

DRUGS (1)
  1. ZANTAC [Suspect]
     Active Substance: RANITIDINE HYDROCHLORIDE
     Dosage: 4-5 TIMES A WEEK ON AVERAGE
     Route: 048
     Dates: start: 2005, end: 2011

REACTIONS (7)
  - Anhedonia [Not Recovered/Not Resolved]
  - Colon cancer [Unknown]
  - Fear of disease [Not Recovered/Not Resolved]
  - Pancreatic carcinoma [Unknown]
  - Anxiety [Not Recovered/Not Resolved]
  - Renal cancer [Unknown]
  - Pain [Not Recovered/Not Resolved]
